FAERS Safety Report 7339205-9 (Version None)
Quarter: 2011Q1

REPORT INFORMATION
  Report Type: 
  Country: None (occurrence: None)
  Receive Date: 20110302
  Receipt Date: 20110214
  Transmission Date: 20110831
  Serious: Yes (Hospitalization, Other)
  Sender: FDA-Public Use
  Company Number: TRP_07548_2011

PATIENT
  Sex: Male
  Weight: 125.1928 kg

DRUGS (17)
  1. INFERGEN [Suspect]
     Indication: HEPATITIS C
     Dosage: 15 UG QD SUBCUTANEOUS
     Route: 058
     Dates: start: 20100206, end: 20110106
  2. LASIX [Concomitant]
  3. KEFLEX [Concomitant]
  4. RIBAPAK (1600 MG, 1200 MG) (NOT SPECIFIED) [Suspect]
     Indication: HEPATITIS C
     Dosage: (800 MG BID ORAL) (1200 MG, DAILY ORAL)
     Route: 048
     Dates: start: 20100802, end: 20110106
  5. RIBAPAK (1600 MG, 1200 MG) (NOT SPECIFIED) [Suspect]
     Indication: HEPATITIS C
     Dosage: (800 MG BID ORAL) (1200 MG, DAILY ORAL)
     Route: 048
     Dates: start: 20100206, end: 20100801
  6. PREDNISONE [Concomitant]
  7. VITAMIN E /00110501/ [Concomitant]
  8. LEXAPRO [Concomitant]
  9. ALDACTONE [Concomitant]
  10. FISH OIL OMEGA [Concomitant]
  11. VITAMIN C /00008001/ [Concomitant]
  12. DOXYCYCLINE [Concomitant]
  13. LISINOPRIL [Concomitant]
  14. METOLAZONE [Concomitant]
  15. TYLENOL EXTRA STRENGTH [Concomitant]
  16. NUVIGIL [Concomitant]
  17. ALLOPURINOL [Concomitant]

REACTIONS (25)
  - MYALGIA [None]
  - PAIN [None]
  - ABDOMINAL DISCOMFORT [None]
  - INSOMNIA [None]
  - JOINT SWELLING [None]
  - HEADACHE [None]
  - ABDOMINAL DISTENSION [None]
  - ERUCTATION [None]
  - NEUTROPENIA [None]
  - ERYTHEMA [None]
  - ANAEMIA [None]
  - CHILLS [None]
  - DIARRHOEA [None]
  - FLATULENCE [None]
  - AGITATION [None]
  - THROMBOCYTOPENIA [None]
  - MUSCLE SPASMS [None]
  - OEDEMA PERIPHERAL [None]
  - DEPRESSION [None]
  - CELLULITIS [None]
  - PROTEIN TOTAL INCREASED [None]
  - FATIGUE [None]
  - LEUKOPENIA [None]
  - ARTHRALGIA [None]
  - GOUT [None]
